FAERS Safety Report 7097324-9 (Version None)
Quarter: 2010Q4

REPORT INFORMATION
  Report Type: 
  Country: None (occurrence: None)
  Receive Date: 20101111
  Receipt Date: 20100302
  Transmission Date: 20110411
  Serious: No
  Sender: FDA-Public Use
  Company Number: US-KINGPHARMUSA00001-K201000250

PATIENT
  Sex: Female
  Weight: 99.773 kg

DRUGS (7)
  1. LEVOXYL [Suspect]
     Indication: THYROID DISORDER
     Dosage: 137 MCG, QD
     Dates: start: 20020701
  2. LEVOXYL [Suspect]
     Dosage: 175 MCG, QD
  3. LEVOXYL [Suspect]
     Dosage: 25 MCG + 137 MCG QD
  4. BENADRYL [Concomitant]
     Indication: HYPERSENSITIVITY
  5. VITAMINS [Concomitant]
  6. CALCIUM [Concomitant]
  7. MAGNESIUM [Concomitant]

REACTIONS (8)
  - ALOPECIA [None]
  - ARTHRALGIA [None]
  - DIARRHOEA [None]
  - EYE IRRITATION [None]
  - FATIGUE [None]
  - GASTRIC HYPERMOTILITY [None]
  - HAIR TEXTURE ABNORMAL [None]
  - QUALITY OF LIFE DECREASED [None]
